FAERS Safety Report 7354202-5 (Version None)
Quarter: 2011Q1

REPORT INFORMATION
  Report Type: 
  Country: None (occurrence: None)
  Receive Date: 20110316
  Receipt Date: 20110307
  Transmission Date: 20110831
  Serious: No
  Sender: FDA-Public Use
  Company Number: US-BIOGENIDEC-2010BI014836

PATIENT
  Age: 19 Year
  Sex: Female

DRUGS (1)
  1. TYSABRI [Suspect]
     Indication: MULTIPLE SCLEROSIS
     Route: 042
     Dates: start: 20090909

REACTIONS (6)
  - HYPOAESTHESIA [None]
  - TREMOR [None]
  - PALPITATIONS [None]
  - MULTIPLE SCLEROSIS [None]
  - ASTHENIA [None]
  - FATIGUE [None]
